FAERS Safety Report 19036120 (Version 1)
Quarter: 2021Q1

REPORT INFORMATION
  Report Type: Spontaneous
  Country: US (occurrence: US)
  Receive Date: 20210321
  Receipt Date: 20210321
  Transmission Date: 20210420
  Serious: No
  Sender: FDA-Public Use
  Company Number: US-ORGANON-O2103USA000642

PATIENT
  Sex: Female
  Weight: 130.16 kg

DRUGS (1)
  1. NEXPLANON [Suspect]
     Active Substance: ETONOGESTREL
     Dosage: UNK
     Route: 059
     Dates: start: 20160315

REACTIONS (2)
  - Complication associated with device [Unknown]
  - Complication of device removal [Unknown]

NARRATIVE: CASE EVENT DATE: 2020
